FAERS Safety Report 20212213 (Version 2)
Quarter: 2022Q4

REPORT INFORMATION
  Report Type: Report from Study
  Country: US (occurrence: US)
  Receive Date: 20211221
  Receipt Date: 20221230
  Transmission Date: 20230113
  Serious: No
  Sender: FDA-Public Use
  Company Number: US-ACORDA-ACO_171196_2021

PATIENT
  Age: 79 Year
  Sex: Female

DRUGS (1)
  1. INBRIJA [Suspect]
     Active Substance: LEVODOPA
     Indication: Parkinson^s disease
     Dosage: INHALE THE CONTENTS OF 2 CAPSULES 5 TIMES A DAY AS NEEDED
     Dates: start: 20201216

REACTIONS (5)
  - Condition aggravated [Not Recovered/Not Resolved]
  - Device issue [Unknown]
  - Product physical issue [Unknown]
  - Nervousness [Not Recovered/Not Resolved]
  - Device maintenance issue [Unknown]

NARRATIVE: CASE EVENT DATE: 20220125
